FAERS Safety Report 13877220 (Version 1)
Quarter: 2017Q3

REPORT INFORMATION
  Report Type: Spontaneous
  Country: US (occurrence: US)
  Receive Date: 20170817
  Receipt Date: 20170817
  Transmission Date: 20171127
  Serious: No
  Sender: FDA-Public Use
  Company Number: US-GLAXOSMITHKLINE-US2017123932

PATIENT
  Sex: Female

DRUGS (1)
  1. TRANSDERM SCOP [Suspect]
     Active Substance: SCOPOLAMINE
     Indication: CYCLIC VOMITING SYNDROME
     Dosage: UNK

REACTIONS (3)
  - Product use in unapproved indication [Unknown]
  - Application site burn [Not Recovered/Not Resolved]
  - Application site reaction [Unknown]
